FAERS Safety Report 8306888-6 (Version None)
Quarter: 2012Q2

REPORT INFORMATION
  Report Type: 
  Country: None (occurrence: None)
  Receive Date: 20120419
  Receipt Date: 20120413
  Transmission Date: 20120825
  Serious: Yes (Life-Threatening, Hospitalization, Disabling, Other)
  Sender: FDA-Public Use
  Company Number: DKLU1076767

PATIENT
  Age: 8 Year
  Sex: Male

DRUGS (8)
  1. ONFI [Suspect]
     Indication: CONVULSION
     Dosage: ORAL, HS, ORAL, 10 MG MILLIGRAM(S), HS, ORAL
     Route: 048
     Dates: start: 20120120
  2. ONFI [Suspect]
     Indication: EPILEPSY
     Dosage: ORAL, HS, ORAL, 10 MG MILLIGRAM(S), HS, ORAL
     Route: 048
     Dates: start: 20120120
  3. ONFI [Suspect]
     Indication: CONVULSION
     Dosage: ORAL, HS, ORAL, 10 MG MILLIGRAM(S), HS, ORAL
     Route: 048
     Dates: start: 20120103
  4. ONFI [Suspect]
     Indication: EPILEPSY
     Dosage: ORAL, HS, ORAL, 10 MG MILLIGRAM(S), HS, ORAL
     Route: 048
     Dates: start: 20120103
  5. TRAZODONE HCL [Concomitant]
  6. DEPAKENE [Concomitant]
  7. DEPAKOTE [Concomitant]
  8. NEURONTIN [Concomitant]

REACTIONS (9)
  - LENTICULAR PIGMENTATION [None]
  - GENERAL PHYSICAL HEALTH DETERIORATION [None]
  - SKIN GRAFT [None]
  - DEFORMITY [None]
  - PAIN [None]
  - STEVENS-JOHNSON SYNDROME [None]
  - TOXIC EPIDERMAL NECROLYSIS [None]
  - BLINDNESS [None]
  - DYSPNOEA [None]
